FAERS Safety Report 24031593 (Version 1)
Quarter: 2024Q2

REPORT INFORMATION
  Report Type: Report from Study
  Country: US (occurrence: US)
  Receive Date: 20240629
  Receipt Date: 20240629
  Transmission Date: 20240716
  Serious: Yes (Hospitalization)
  Sender: FDA-Public Use
  Company Number: US-ABBVIE-5817627

PATIENT
  Age: 89 Year
  Sex: Male

DRUGS (1)
  1. VENCLEXTA [Suspect]
     Active Substance: VENETOCLAX
     Indication: Product used for unknown indication
     Route: 048
     Dates: start: 20240612, end: 20240621

REACTIONS (4)
  - Myocardial infarction [Recovering/Resolving]
  - Dyspnoea [Recovering/Resolving]
  - Haemoglobin abnormal [Recovering/Resolving]
  - Platelet count abnormal [Recovering/Resolving]

NARRATIVE: CASE EVENT DATE: 20240601
